FAERS Safety Report 25100422 (Version 1)
Quarter: 2025Q1

REPORT INFORMATION
  Report Type: Spontaneous
  Country: US (occurrence: US)
  Receive Date: 20250320
  Receipt Date: 20250320
  Transmission Date: 20250409
  Serious: No
  Sender: PFIZER
  Company Number: US-PFIZER INC-PV202500033458

PATIENT
  Age: 68 Year
  Sex: Male

DRUGS (2)
  1. RIFABUTIN [Suspect]
     Active Substance: RIFABUTIN
     Indication: Atypical mycobacterial infection
  2. RIFABUTIN [Suspect]
     Active Substance: RIFABUTIN
     Indication: Pulmonary cavitation

REACTIONS (3)
  - Nausea [Unknown]
  - Weight decreased [Unknown]
  - Off label use [Unknown]
